FAERS Safety Report 5337727-3 (Version None)
Quarter: 2007Q1

REPORT INFORMATION
  Report Type: 
  Country: None (occurrence: None)
  Receive Date: 20070308
  Receipt Date: 20061211
  Transmission Date: 20070707
  Serious: No
  Sender: FDA-Public Use
  Company Number: 2006-BP-14358BP

PATIENT
  Sex: Female

DRUGS (1)
  1. SPIRIVA [Suspect]
     Indication: CHRONIC OBSTRUCTIVE PULMONARY DISEASE
     Dosage: 18 MCG (18 MCG, QD), PO
     Route: 048
     Dates: start: 20061101

REACTIONS (4)
  - DYSPHAGIA [None]
  - PHARYNGEAL ERYTHEMA [None]
  - PHARYNGEAL OEDEMA [None]
  - THROAT IRRITATION [None]
